FAERS Safety Report 9705078 (Version 1)
Quarter: 2013Q4

REPORT INFORMATION
  Report Type: Spontaneous
  Country: US (occurrence: US)
  Receive Date: 20131122
  Receipt Date: 20131122
  Transmission Date: 20140711
  Serious: No
  Sender: FDA-Public Use
  Company Number: US-TEVA-445619USA

PATIENT
  Age: 65 Year
  Sex: Male
  Weight: 77.18 kg

DRUGS (4)
  1. PROAIR HFA [Suspect]
     Indication: HYPERSENSITIVITY
     Dates: start: 2006
  2. PROAIR HFA [Suspect]
     Indication: RHINITIS
  3. PROAIR HFA [Suspect]
     Indication: SINUSITIS
  4. ZOLOFT [Concomitant]
     Indication: DEPRESSION
     Dosage: 25 MILLIGRAM DAILY;
     Route: 048

REACTIONS (5)
  - Dyspnoea [Recovered/Resolved]
  - Cough [Recovered/Resolved]
  - Wheezing [Recovered/Resolved]
  - Presyncope [Unknown]
  - Device malfunction [Unknown]
